FAERS Safety Report 8862098 (Version 3)
Quarter: 2014Q2

REPORT INFORMATION
  Report Type: Spontaneous
  Country: US (occurrence: US)
  Receive Date: 20121026
  Receipt Date: 20131024
  Transmission Date: 20141212
  Serious: No
  Sender: FDA-Public Use
  Company Number: US-PFIZER INC-2012265019

PATIENT
  Sex: Female

DRUGS (1)
  1. FLAGYL [Suspect]
     Dosage: 500 MG, UNK

REACTIONS (7)
  - Malaise [Unknown]
  - Vomiting [Unknown]
  - Dizziness [Unknown]
  - Dizziness [Unknown]
  - Abdominal pain [Unknown]
  - Discomfort [Unknown]
  - Pain [Unknown]
